FAERS Safety Report 7043503-6 (Version None)
Quarter: 2010Q4

REPORT INFORMATION
  Report Type: 
  Country: None (occurrence: None)
  Receive Date: 20101008
  Receipt Date: 20100923
  Transmission Date: 20110411
  Serious: Yes (Hospitalization, Congenital Anomaly, Other)
  Sender: FDA-Public Use
  Company Number: GER/UKI/10/0016101

PATIENT

DRUGS (8)
  1. LAMOTRIGINE [Suspect]
     Indication: GRAND MAL CONVULSION
     Dosage: TRANSPLACENTAL
     Route: 064
  2. ARIPIPRAZOLE [Concomitant]
  3. DICLOFENAC SODIUM (DICLOFENAC) [Concomitant]
  4. FOLIC ACID [Concomitant]
  5. ISPAGHULA HUSK (PLANTAGO OVATA HUSK) [Concomitant]
  6. LANSOPRAZOLE [Concomitant]
  7. PROPRANOLOL [Concomitant]
  8. SERTRALINE HYDROCHLORIDE [Concomitant]

REACTIONS (2)
  - MATERNAL DRUGS AFFECTING FOETUS [None]
  - VENTRICULAR SEPTAL DEFECT [None]
